FAERS Safety Report 26174661 (Version 1)
Quarter: 2025Q4

REPORT INFORMATION
  Report Type: Spontaneous
  Country: US (occurrence: None)
  Receive Date: 20251217
  Receipt Date: 20251217
  Transmission Date: 20260117
  Serious: Yes (Other)
  Sender: FDA-CTU
  Company Number: None

PATIENT
  Age: 78 Year
  Sex: Female
  Weight: 49.5 kg

DRUGS (22)
  1. DUPIXENT [Suspect]
     Active Substance: DUPILUMAB
     Indication: Chronic obstructive pulmonary disease
     Dosage: OTHER FREQUENCY : EVERY 2 WEEKS;
     Route: 058
  2. LORAZEPAM [Concomitant]
     Active Substance: LORAZEPAM
  3. FLUDROCORTISONE [Concomitant]
     Active Substance: FLUDROCORTISONE
  4. VITAMIN D [Concomitant]
     Active Substance: VITAMIN D NOS
  5. TRELEGY ELLIPTA [Concomitant]
     Active Substance: FLUTICASONE FUROATE\UMECLIDINIUM BROMIDE\VILANTEROL TRIFENATATE
  6. JARDIANCE [Concomitant]
     Active Substance: EMPAGLIFLOZIN
  7. LEVOCETIRIZINE [Concomitant]
     Active Substance: LEVOCETIRIZINE
  8. TIZANIDINE [Concomitant]
     Active Substance: TIZANIDINE
  9. PREGABALIN [Concomitant]
     Active Substance: PREGABALIN
  10. METOPROLOL SUCCINATE [Concomitant]
     Active Substance: METOPROLOL SUCCINATE
  11. Potassium CHL 20 mEq [Concomitant]
  12. PANTOPRAZOLE SODIUM [Concomitant]
     Active Substance: PANTOPRAZOLE SODIUM
  13. Diltiazem HCl 60 mg [Concomitant]
  14. MONTELUKAST SODIUM [Concomitant]
     Active Substance: MONTELUKAST SODIUM
  15. Entresto 24--26 mg [Concomitant]
  16. ATORVASTATIN [Concomitant]
     Active Substance: ATORVASTATIN
  17. Cilostazol 100 mg [Concomitant]
  18. GABAPENTIN [Concomitant]
     Active Substance: GABAPENTIN
  19. MIDODRINE [Concomitant]
     Active Substance: MIDODRINE
  20. albuteron sulfate 2.5 mg/3 ml [Concomitant]
  21. Isosorbide Dinitrate 20 mg [Concomitant]
  22. Ipratroprium/Albuterol 0.5 mg/2.5 mg/ 3 mls [Concomitant]

REACTIONS (3)
  - Dyspnoea [None]
  - Cough [None]
  - Confusional state [None]

NARRATIVE: CASE EVENT DATE: 20251217
